FAERS Safety Report 8313790-2 (Version None)
Quarter: 2012Q2

REPORT INFORMATION
  Report Type: 
  Country: None (occurrence: None)
  Receive Date: 20120426
  Receipt Date: 20120423
  Transmission Date: 20120825
  Serious: No
  Sender: FDA-Public Use
  Company Number: US-B.I. PHARMACEUTICALS,INC./RIDGEFIELD-2012-BP-09275BP

PATIENT
  Sex: Female

DRUGS (3)
  1. THIAZIDE [Concomitant]
     Indication: HYPERTENSION
  2. PRADAXA [Suspect]
     Indication: ATRIAL FIBRILLATION
     Dosage: 300 MG
     Route: 048
     Dates: start: 20111101
  3. LEXAPRO [Concomitant]
     Indication: DEPRESSION

REACTIONS (4)
  - ABDOMINAL DISCOMFORT [None]
  - RASH [None]
  - JOINT STIFFNESS [None]
  - DYSPNOEA [None]
